FAERS Safety Report 16386309 (Version 12)
Quarter: 2020Q2

REPORT INFORMATION
  Report Type: Report from Study
  Country: NL (occurrence: NL)
  Receive Date: 20190603
  Receipt Date: 20200514
  Transmission Date: 20200713
  Serious: Yes (Other)
  Sender: FDA-Public Use
  Company Number: NL-INCYTE CORPORATION-2019IN005569

PATIENT

DRUGS (9)
  1. JAKAVI [Suspect]
     Active Substance: RUXOLITINIB
     Indication: POLYCYTHAEMIA VERA
     Dosage: 10 OT, UNK
     Route: 065
     Dates: start: 20180423, end: 20180528
  2. COLECALCIFEROL;MAGNESIUM CITRATE [Concomitant]
     Indication: VITAMIN SUPPLEMENTATION
     Dosage: 2 OT (25000 IE/ML)
     Route: 065
     Dates: start: 20170731
  3. JAKAVI [Suspect]
     Active Substance: RUXOLITINIB
     Dosage: 30 OT, UNK
     Route: 065
     Dates: start: 20180903
  4. JAKAVI [Suspect]
     Active Substance: RUXOLITINIB
     Dosage: 20 OT, UNK
     Route: 065
     Dates: start: 20180529, end: 20180903
  5. LEVOTHYROXINE. [Concomitant]
     Active Substance: LEVOTHYROXINE
     Indication: HYPOTHYROIDISM
     Dosage: 88 OT, UNK
     Route: 065
     Dates: start: 20170731
  6. AMLODIPINE [Concomitant]
     Active Substance: AMLODIPINE BESYLATE
     Indication: HYPERTENSION
     Dosage: 10 OT, UNK
     Route: 065
     Dates: start: 20151201, end: 20191120
  7. ANAGRELIDE. [Concomitant]
     Active Substance: ANAGRELIDE HYDROCHLORIDE
     Indication: POLYCYTHAEMIA VERA
     Dosage: 0.5 OT
     Route: 065
     Dates: start: 20171211, end: 20180301
  8. METOPROLOL. [Concomitant]
     Active Substance: METOPROLOL
     Indication: HYPERTENSION
     Dosage: 100 UNK
     Route: 065
     Dates: start: 20151217
  9. AMLODIPINE [Concomitant]
     Active Substance: AMLODIPINE BESYLATE
     Dosage: 5 OT
     Route: 065
     Dates: start: 20191121

REACTIONS (22)
  - Bone pain [Recovered/Resolved]
  - Cholelithiasis [Not Recovered/Not Resolved]
  - Flatulence [Recovered/Resolved]
  - Headache [Recovered/Resolved]
  - Muscle injury [Not Recovered/Not Resolved]
  - Sleep apnoea syndrome [Not Recovered/Not Resolved]
  - Nasopharyngitis [Recovered/Resolved]
  - Hypertension [Not Recovered/Not Resolved]
  - Bronchitis [Recovered/Resolved]
  - Influenza like illness [Recovered/Resolved]
  - Herpes zoster [Recovered/Resolved with Sequelae]
  - Drug ineffective [Recovered/Resolved]
  - Weight increased [Recovered/Resolved]
  - Weight increased [Not Recovered/Not Resolved]
  - Abdominal distension [Recovered/Resolved]
  - Non-cardiac chest pain [Recovered/Resolved]
  - Parotitis [Recovered/Resolved]
  - Concomitant disease aggravated [Not Recovered/Not Resolved]
  - Pneumonia [Recovered/Resolved]
  - Pneumonia [Recovered/Resolved]
  - Conjunctivitis [Recovered/Resolved]
  - Dry eye [Not Recovered/Not Resolved]

NARRATIVE: CASE EVENT DATE: 20180528
